FAERS Safety Report 7981567-3 (Version None)
Quarter: 2011Q4

REPORT INFORMATION
  Report Type: 
  Country: None (occurrence: None)
  Receive Date: 20111213
  Receipt Date: 20111130
  Transmission Date: 20120403
  Serious: Yes (Hospitalization)
  Sender: FDA-Public Use
  Company Number: 1000026067

PATIENT
  Age: 75 Year
  Sex: Female

DRUGS (12)
  1. METFORMIN HCL [Concomitant]
  2. CITALOPRAM HYDROBROMIDE [Suspect]
     Indication: DEPRESSION
     Dosage: 20 MG (20 MG, 1 IN 1D), ORAL
     Route: 048
     Dates: start: 20111108, end: 20111113
  3. FLUCLOXACILLIN (FLUCLOXACILLIN) (FLUCLOXACILLIN) [Concomitant]
  4. FOLIC ACID [Concomitant]
  5. LISINOPRIL [Concomitant]
  6. MUPIROCIN (MUPIROCIN) (MUPIROCIN) [Concomitant]
  7. SIMVASTATIN [Concomitant]
  8. DEXAMETASONE (DEXAMETASONE) (DEXAMETHASONE) [Concomitant]
  9. ASPIRIN [Concomitant]
  10. ENOXAPARIN (ENOXAPARIN) (ENOXAPRIN) [Concomitant]
  11. HYDROXOCOBALAMIN (HYDROXOCOBALAMIN) (HYDROXOCOBALAMIN) [Concomitant]
  12. ISMN (ISOSORBIDE MONONITRATE) (ISOSORBIDE MONONITRATE) [Concomitant]

REACTIONS (3)
  - CELLULITIS [None]
  - CONFUSIONAL STATE [None]
  - INAPPROPRIATE ANTIDIURETIC HORMONE SECRETION [None]
